FAERS Safety Report 10611631 (Version 3)
Quarter: 2015Q1

REPORT INFORMATION
  Report Type: Spontaneous
  Country: US (occurrence: US)
  Receive Date: 20141126
  Receipt Date: 20150330
  Transmission Date: 20150720
  Serious: No
  Sender: FDA-Public Use
  Company Number: US-PFIZER INC-2014300798

PATIENT
  Age: 58 Year
  Sex: Female

DRUGS (4)
  1. LANOXIN [Concomitant]
     Active Substance: DIGOXIN
     Dosage: 25 MG, ONE TABLET QD
     Dates: start: 1992
  2. NORPACE [Suspect]
     Active Substance: DISOPYRAMIDE PHOSPHATE
     Indication: SINUS RHYTHM
     Dosage: 3 DF( 100MG IS 1DF), 2X/DAY
  3. NORPACE [Suspect]
     Active Substance: DISOPYRAMIDE PHOSPHATE
     Indication: ATRIAL FIBRILLATION
     Dosage: 2 DF (150MG IS 1 DF), 2X/DAY
     Dates: start: 1992
  4. ASPIRIN. [Concomitant]
     Active Substance: ASPIRIN
     Dosage: UNK, ONE TABLET QD
     Dates: start: 2000

REACTIONS (2)
  - Palpitations [Unknown]
  - Heart rate irregular [Unknown]
